FAERS Safety Report 8734041 (Version 2)
Quarter: 2012Q4

REPORT INFORMATION
  Report Type: Report from Study
  Country: US (occurrence: US)
  Receive Date: 20120821
  Receipt Date: 20121211
  Transmission Date: 20130627
  Serious: Yes (Hospitalization)
  Sender: FDA-Public Use
  Company Number: US-ROCHE-1103216

PATIENT
  Age: 54 Year
  Sex: Female
  Weight: 85.35 kg

DRUGS (1)
  1. CAPECITABINE [Suspect]
     Indication: PANCREATIC CARCINOMA
     Route: 048
     Dates: start: 20120207, end: 201211

REACTIONS (3)
  - Thrombosis [Recovering/Resolving]
  - Arterial haemorrhage [Recovering/Resolving]
  - Drug effect decreased [Not Recovered/Not Resolved]
